FAERS Safety Report 4646143-9 (Version None)
Quarter: 2005Q2

REPORT INFORMATION
  Report Type: 
  Country: None (occurrence: None)
  Receive Date: 20050427
  Receipt Date: 20041007
  Transmission Date: 20051028
  Serious: No
  Sender: FDA-Public Use
  Company Number: US-GLAXOSMITHKLINE-A0529008A

PATIENT
  Age: 51 Year
  Sex: Male

DRUGS (4)
  1. ZOFRAN [Suspect]
     Indication: NAUSEA
     Dosage: 4MG FOUR TIMES PER DAY
     Route: 048
     Dates: start: 20041005
  2. INSULIN [Concomitant]
  3. GLUCOPHAGE [Concomitant]
  4. OXYCONTIN [Concomitant]

REACTIONS (2)
  - BLOOD GLUCOSE DECREASED [None]
  - FEELING JITTERY [None]
